FAERS Safety Report 22241584 (Version 5)
Quarter: 2023Q2

REPORT INFORMATION
  Report Type: Report from Study
  Country: US (occurrence: US)
  Receive Date: 20230421
  Receipt Date: 20230626
  Transmission Date: 20230721
  Serious: Yes (Other)
  Sender: FDA-Public Use
  Company Number: US-002147023-NVSC2023US087624

PATIENT
  Sex: Female

DRUGS (2)
  1. KESIMPTA [Suspect]
     Active Substance: OFATUMUMAB
     Indication: Relapsing multiple sclerosis
     Dosage: 20 MG, QW (FIRST LOADING DOSE)
     Route: 058
     Dates: start: 20230405
  2. KESIMPTA [Suspect]
     Active Substance: OFATUMUMAB
     Dosage: 20 MG, QW (SECOND LOADING DOSE)
     Route: 058

REACTIONS (13)
  - Pneumonia [Unknown]
  - Cough [Unknown]
  - Secretion discharge [Not Recovered/Not Resolved]
  - Chest pain [Unknown]
  - Sneezing [Unknown]
  - Aphonia [Unknown]
  - Rhinorrhoea [Unknown]
  - Oropharyngeal pain [Unknown]
  - Throat irritation [Unknown]
  - Lymphadenopathy [Unknown]
  - Weight decreased [Not Recovered/Not Resolved]
  - Injection site bruising [Not Recovered/Not Resolved]
  - Injection site pain [Unknown]
